FAERS Safety Report 5467005-3 (Version None)
Quarter: 2007Q3

REPORT INFORMATION
  Report Type: 
  Country: None (occurrence: None)
  Receive Date: 20070925
  Receipt Date: 20070919
  Transmission Date: 20080115
  Serious: Yes (Other)
  Sender: FDA-Public Use
  Company Number: A0683014A

PATIENT
  Age: 63 Year
  Sex: Female

DRUGS (7)
  1. ZANTAC [Suspect]
     Indication: GASTROOESOPHAGEAL REFLUX DISEASE
     Dosage: 150MG TWICE PER DAY
     Route: 048
     Dates: start: 20070601
  2. FOLIC ACID [Concomitant]
  3. NASACORT [Concomitant]
  4. ACTONEL [Concomitant]
  5. METHOTREXATE [Concomitant]
  6. BACTRIM [Concomitant]
  7. ADVAIR DISKUS 100/50 [Concomitant]

REACTIONS (1)
  - HYPERTHYROIDISM [None]
